FAERS Safety Report 25818781 (Version 1)
Quarter: 2025Q3

REPORT INFORMATION
  Report Type: Spontaneous
  Country: IN (occurrence: IN)
  Receive Date: 20250918
  Receipt Date: 20250918
  Transmission Date: 20251020
  Serious: Yes (Hospitalization, Other)
  Sender: BOEHRINGER INGELHEIM
  Company Number: IN-BoehringerIngelheim-2025-BI-095120

PATIENT
  Age: 57 Year
  Sex: Male

DRUGS (10)
  1. AFATINIB [Suspect]
     Active Substance: AFATINIB
     Indication: Sarcomatoid carcinoma of the lung
  2. AFATINIB [Suspect]
     Active Substance: AFATINIB
     Indication: EGFR gene mutation
  3. PEMETREXED [Concomitant]
     Active Substance: PEMETREXED
     Indication: Sarcomatoid carcinoma of the lung
  4. PEMETREXED [Concomitant]
     Active Substance: PEMETREXED
     Indication: EGFR gene mutation
  5. CARBOPLATIN [Concomitant]
     Active Substance: CARBOPLATIN
     Indication: Sarcomatoid carcinoma of the lung
  6. CARBOPLATIN [Concomitant]
     Active Substance: CARBOPLATIN
     Indication: EGFR gene mutation
  7. OSIMERTINIB [Concomitant]
     Active Substance: OSIMERTINIB
     Indication: Sarcomatoid carcinoma of the lung
  8. OSIMERTINIB [Concomitant]
     Active Substance: OSIMERTINIB
     Indication: EGFR gene mutation
  9. BEVACIZUMAB [Concomitant]
     Active Substance: BEVACIZUMAB
     Indication: Sarcomatoid carcinoma of the lung
  10. BEVACIZUMAB [Concomitant]
     Active Substance: BEVACIZUMAB
     Indication: EGFR gene mutation

REACTIONS (8)
  - Malignant neoplasm progression [Recovering/Resolving]
  - Nausea [Unknown]
  - Adrenal cortex necrosis [Unknown]
  - Pneumonitis [Recovered/Resolved]
  - Diarrhoea [Unknown]
  - Hand-foot-and-mouth disease [Unknown]
  - Pleural effusion [Unknown]
  - Intentional product use issue [Unknown]

NARRATIVE: CASE EVENT DATE: 20230101
